FAERS Safety Report 6134829-9 (Version None)
Quarter: 2009Q1

REPORT INFORMATION
  Report Type: 
  Country: None (occurrence: None)
  Receive Date: 20090325
  Receipt Date: 20090309
  Transmission Date: 20090719
  Serious: Yes (Life-Threatening)
  Sender: FDA-Public Use
  Company Number: 8040122

PATIENT
  Age: 71 Year
  Sex: Male

DRUGS (2)
  1. KEPPRA [Suspect]
     Indication: PARTIAL SEIZURES
     Dosage: 500 MG 1/D PO
     Route: 048
     Dates: start: 20080627, end: 20080912
  2. DEPAKENE [Suspect]
     Indication: PARTIAL SEIZURES
     Dosage: 1500 MG 1/D PO
     Route: 048
     Dates: start: 20080530, end: 20080818

REACTIONS (2)
  - DRUG INTERACTION [None]
  - HEPATITIS CHOLESTATIC [None]
